FAERS Safety Report 18344186 (Version 2)
Quarter: 2020Q4

REPORT INFORMATION
  Report Type: Report from Study
  Country: PH (occurrence: PH)
  Receive Date: 20201005
  Receipt Date: 20201116
  Transmission Date: 20210114
  Serious: Yes (Death, Hospitalization, Other)
  Sender: FDA-Public Use
  Company Number: PH-JNJFOC-20200948264

PATIENT
  Age: 23 Year
  Sex: Female

DRUGS (1)
  1. MACITENTAN [Suspect]
     Active Substance: MACITENTAN
     Indication: PULMONARY HYPERTENSION
     Route: 048

REACTIONS (3)
  - Arrhythmia [Fatal]
  - Pulmonary hypertension [Fatal]
  - Pneumonia [Unknown]
